FAERS Safety Report 21571887 (Version 1)
Quarter: 2022Q4

REPORT INFORMATION
  Report Type: Report from Study
  Country: US (occurrence: US)
  Receive Date: 20221109
  Receipt Date: 20221109
  Transmission Date: 20230113
  Serious: Yes (Life-Threatening, Other)
  Sender: FDA-Public Use
  Company Number: US-UCBSA-2022059325

PATIENT
  Sex: Male
  Weight: 46 kg

DRUGS (4)
  1. BRIVARACETAM [Suspect]
     Active Substance: BRIVARACETAM
     Indication: Seizure
     Dosage: 100 MILLIGRAM, 2X/DAY (BID)
  2. XCOPRI [Concomitant]
     Active Substance: CENOBAMATE
     Indication: Product used for unknown indication
  3. OXCARBAZEPINE [Concomitant]
     Active Substance: OXCARBAZEPINE
     Indication: Product used for unknown indication
  4. CLOBAZAM [Concomitant]
     Active Substance: CLOBAZAM
     Indication: Product used for unknown indication

REACTIONS (10)
  - Seizure [Unknown]
  - Memory impairment [Not Recovered/Not Resolved]
  - Incontinence [Unknown]
  - Aura [Unknown]
  - Generalised tonic-clonic seizure [Unknown]
  - Amnesia [Unknown]
  - Vomiting [Unknown]
  - Tremor [Unknown]
  - Hyperhidrosis [Unknown]
  - Insomnia [Unknown]
